FAERS Safety Report 9518397 (Version 1)
Quarter: 2013Q3

REPORT INFORMATION
  Report Type: Spontaneous
  Country: US (occurrence: None)
  Receive Date: 20130910
  Receipt Date: 20130910
  Transmission Date: 20140515
  Serious: Yes (Other)
  Sender: FDA-Public Use
  Company Number: None

PATIENT
  Age: 54 Year
  Sex: Female

DRUGS (10)
  1. ZELBORAF [Suspect]
     Indication: MALIGNANT MELANOMA
     Dosage: 960MG Q12H PO
     Route: 048
     Dates: start: 20130301, end: 20130906
  2. SEPTRA DS [Concomitant]
  3. BACTROBAN [Concomitant]
  4. LORAZEPAM [Concomitant]
  5. LEVOFLOXACIN [Concomitant]
  6. LORCET [Concomitant]
  7. AZITHROMYCIN [Concomitant]
  8. METFORMIN [Concomitant]
  9. DEXAMETHASONE [Concomitant]
  10. FLUTICASONE [Concomitant]

REACTIONS (2)
  - Drug ineffective [None]
  - Neoplasm progression [None]
